FAERS Safety Report 8218112-3 (Version None)
Quarter: 2012Q1

REPORT INFORMATION
  Report Type: 
  Country: None (occurrence: None)
  Receive Date: 20120305
  Receipt Date: 20111104
  Transmission Date: 20120608
  Serious: No
  Sender: FDA-Public Use
  Company Number: 1000025255

PATIENT
  Age: 81 Year
  Sex: Male

DRUGS (5)
  1. DALIRESP [Suspect]
     Indication: LUNG DISORDER
     Dosage: 500 MCG (500 MCG,1 IN 1 D),ORAL
     Route: 048
     Dates: start: 20111102, end: 20111104
  2. DALIRESP [Suspect]
     Indication: EMPHYSEMA
     Dosage: 500 MCG (500 MCG,1 IN 1 D),ORAL
     Route: 048
     Dates: start: 20111102, end: 20111104
  3. DALIRESP [Suspect]
     Indication: PULMONARY OEDEMA
     Dosage: 500 MCG (500 MCG,1 IN 1 D),ORAL
     Route: 048
     Dates: start: 20111102, end: 20111104
  4. DIURETIC (DIURETIC) (DIURETIC) [Concomitant]
  5. POTASSIUM (POTASSIUM) (POTASSIUM) [Concomitant]

REACTIONS (2)
  - OFF LABEL USE [None]
  - PAINFUL RESPIRATION [None]
